FAERS Safety Report 17130407 (Version 1)
Quarter: 2019Q4

REPORT INFORMATION
  Report Type: Spontaneous
  Country: US (occurrence: US)
  Receive Date: 20191209
  Receipt Date: 20191209
  Transmission Date: 20200122
  Serious: No
  Sender: FDA-Public Use
  Company Number: US-ASTRAZENECA-2019SF75387

PATIENT

DRUGS (2)
  1. LUMOXITI [Suspect]
     Active Substance: MOXETUMOMAB PASUDOTOX-TDFK
     Route: 042
     Dates: start: 20191104
  2. LUMOXITI [Suspect]
     Active Substance: MOXETUMOMAB PASUDOTOX-TDFK
     Route: 042
     Dates: start: 20191107

REACTIONS (1)
  - Platelet transfusion [Unknown]

NARRATIVE: CASE EVENT DATE: 20191107
